FAERS Safety Report 8022012-1 (Version None)
Quarter: 2011Q4

REPORT INFORMATION
  Report Type: 
  Country: None (occurrence: None)
  Receive Date: 20111230
  Receipt Date: 20111217
  Transmission Date: 20120403
  Serious: Yes (Other)
  Sender: FDA-Public Use
  Company Number: IPC201112-003266

PATIENT

DRUGS (1)
  1. PROPRANOLOL HYDROCHLORIDE [Suspect]
     Indication: HAEMANGIOMA
     Dosage: 1 MILLIGRAM PER KILOGRAM, ORAL
     Route: 048

REACTIONS (8)
  - THERAPEUTIC RESPONSE UNEXPECTED [None]
  - BLOOD PRESSURE DIASTOLIC DECREASED [None]
  - OFF LABEL USE [None]
  - BRADYCARDIA [None]
  - HYPERSOMNIA [None]
  - PERIPHERAL COLDNESS [None]
  - GASTROOESOPHAGEAL REFLUX DISEASE [None]
  - LIP DISORDER [None]
